FAERS Safety Report 11527954 (Version 1)
Quarter: 2015Q3

REPORT INFORMATION
  Report Type: Report from Study
  Country: CA (occurrence: CA)
  Receive Date: 20150920
  Receipt Date: 20150920
  Transmission Date: 20151125
  Serious: Yes (Death)
  Sender: FDA-Public Use
  Company Number: CA-ROCHE-1636058

PATIENT
  Sex: Male

DRUGS (2)
  1. LUCENTIS [Suspect]
     Active Substance: RANIBIZUMAB
     Indication: NEOVASCULAR AGE-RELATED MACULAR DEGENERATION
     Dosage: 0.05 ML
     Route: 065
     Dates: start: 20120426
  2. LUCENTIS [Suspect]
     Active Substance: RANIBIZUMAB
     Dosage: 0.05 ML
     Route: 065
     Dates: start: 20140408

REACTIONS (1)
  - Death [Fatal]
